FAERS Safety Report 9095738 (Version 1)
Quarter: 2013Q1

REPORT INFORMATION
  Report Type: Spontaneous
  Country: GB (occurrence: None)
  Receive Date: 20130124
  Receipt Date: 20130124
  Transmission Date: 20140127
  Serious: Yes (Other)
  Sender: FDA-Public Use
  Company Number: 2013-00772

PATIENT
  Age: 21 Year
  Sex: Female
  Weight: 52 kg

DRUGS (1)
  1. ACETAMINOPHEN (+) CODEINE PHOSPHATE [Suspect]
     Indication: HEADACHE
     Route: 048

REACTIONS (8)
  - Migraine with aura [None]
  - Dissociation [None]
  - Paraesthesia [None]
  - Photophobia [None]
  - Irritability [None]
  - Emotional disorder [None]
  - Depression [None]
  - Vomiting [None]
